FAERS Safety Report 8732574 (Version 2)
Quarter: 2012Q4

REPORT INFORMATION
  Report Type: 
  Country: ES (occurrence: ES)
  Receive Date: 20120820
  Receipt Date: 20121120
  Transmission Date: 20130627
  Serious: Yes (Hospitalization, Other)
  Sender: FDA-Public Use
  Company Number: ES-ROCHE-1101381

PATIENT
  Age: 77 Year
  Sex: Female

DRUGS (6)
  1. TORADOL [Suspect]
     Indication: PAIN
     Route: 042
     Dates: start: 20120719
  2. SEROQUEL [Interacting]
     Indication: AGITATION
     Route: 048
     Dates: start: 20120719, end: 20120722
  3. LEVOFLOXACIN [Interacting]
     Indication: INFECTION
     Route: 042
     Dates: start: 20120719, end: 20120722
  4. OMEPRAZOL [Concomitant]
     Indication: PROPHYLAXIS
     Route: 048
     Dates: start: 20120603, end: 20120722
  5. NOLOTIL [Concomitant]
     Indication: PAIN
     Route: 048
     Dates: start: 20120711, end: 20120722
  6. RIFALDIN [Concomitant]
     Indication: INFECTION
     Route: 042
     Dates: start: 20120719, end: 20120722

REACTIONS (3)
  - Status epilepticus [Not Recovered/Not Resolved]
  - Hypomagnesaemia [Unknown]
  - Hypokalaemia [Unknown]
